FAERS Safety Report 7964865-9 (Version None)
Quarter: 2011Q4

REPORT INFORMATION
  Report Type: 
  Country: None (occurrence: None)
  Receive Date: 20111208
  Receipt Date: 20111208
  Transmission Date: 20120403
  Serious: Yes (Life-Threatening, Other)
  Sender: FDA-Public Use
  Company Number: None

PATIENT
  Sex: Female
  Weight: 102.05 kg

DRUGS (7)
  1. SUMATRIPTAN PRN [Concomitant]
     Route: 048
  2. DROSPIRENONE AND ETHINYL ESTRADIOL [Concomitant]
     Indication: PRODUCT SUBSTITUTION ISSUE
     Dosage: 3MG/0.02MG
     Route: 048
     Dates: start: 20100722, end: 20100903
  3. ROVENTIL HFA 6.7GM PRN [Concomitant]
  4. YAZ [Suspect]
     Indication: MENSTRUATION IRREGULAR
     Dosage: 3MG/0.02MG
     Route: 048
     Dates: start: 20090901, end: 20101115
  5. YAZ [Suspect]
     Indication: DYSMENORRHOEA
     Dosage: 3MG/0.02MG
     Route: 048
     Dates: start: 20090901, end: 20101115
  6. MELATONIN  PRN [Concomitant]
  7. EXCEDERIN MIGRAINE PRN [Concomitant]
     Route: 048

REACTIONS (17)
  - BLOOD CHOLESTEROL INCREASED [None]
  - MIGRAINE [None]
  - CONDITION AGGRAVATED [None]
  - BLOOD TRIGLYCERIDES ABNORMAL [None]
  - LOW DENSITY LIPOPROTEIN INCREASED [None]
  - DYSMENORRHOEA [None]
  - HYPOTHYROIDISM [None]
  - AMENORRHOEA [None]
  - LIPIDS ABNORMAL [None]
  - PALPITATIONS [None]
  - SUPRAVENTRICULAR EXTRASYSTOLES [None]
  - WEIGHT INCREASED [None]
  - PARAESTHESIA [None]
  - CARDIAC DISORDER [None]
  - VENTRICULAR EXTRASYSTOLES [None]
  - POLYCYSTIC OVARIES [None]
  - HYPOAESTHESIA [None]
